FAERS Safety Report 6401392-4 (Version None)
Quarter: 2009Q4

REPORT INFORMATION
  Report Type: 
  Country: None (occurrence: None)
  Receive Date: 20091015
  Receipt Date: 20091002
  Transmission Date: 20100525
  Serious: Yes (Hospitalization)
  Sender: FDA-Public Use
  Company Number: PHHY2009FR42686

PATIENT
  Sex: Male

DRUGS (5)
  1. LAMISIL [Suspect]
     Indication: ONYCHOMYCOSIS
     Dosage: UNK
     Route: 048
     Dates: start: 20090606, end: 20090704
  2. CORTANCYL [Concomitant]
     Dosage: 20 MG PER DAY
     Dates: start: 20080101
  3. CACIT D3 [Concomitant]
     Dosage: 1 DF/ DAY
     Dates: start: 20080101
  4. ALBUTEROL [Concomitant]
     Dosage: UNK
  5. IPRATROPIUM [Concomitant]
     Dosage: UNK

REACTIONS (10)
  - ACUTE GENERALISED EXANTHEMATOUS PUSTULOSIS [None]
  - EYELID OEDEMA [None]
  - HYPOALBUMINAEMIA [None]
  - HYPOPROTEINAEMIA [None]
  - KOEBNER PHENOMENON [None]
  - OEDEMA PERIPHERAL [None]
  - PYREXIA [None]
  - RASH [None]
  - RASH PUSTULAR [None]
  - SKIN LESION [None]
